FAERS Safety Report 5144869-4 (Version None)
Quarter: 2006Q4

REPORT INFORMATION
  Report Type: 
  Country: None (occurrence: None)
  Receive Date: 20061107
  Receipt Date: 20060830
  Transmission Date: 20070319
  Serious: Yes (Other)
  Sender: FDA-Public Use
  Company Number: US-ELI_LILLY_AND_COMPANY-US200608006957

PATIENT
  Age: 47 Year
  Sex: Male

DRUGS (5)
  1. ZYPREXA ZYDIS [Suspect]
     Indication: BIPOLAR I DISORDER
     Dosage: 5 MG, DAILY (1/D)
     Dates: start: 20060607
  2. ZYPREXA ZYDIS [Suspect]
     Dosage: 15 MG, DAILY (1/D)
     Dates: end: 20060828
  3. LOTREL [Concomitant]
     Indication: BLOOD PRESSURE ABNORMAL
     Dosage: 5 MG, EACH EVENING
  4. MARIJUANA [Concomitant]
     Dosage: UNK, UNK
     Route: 055
  5. CLARITIN                                /USA/ [Concomitant]

REACTIONS (5)
  - DYSPNOEA [None]
  - GLUCOSE TOLERANCE IMPAIRED [None]
  - LARYNGOSPASM [None]
  - SUFFOCATION FEELING [None]
  - WEIGHT INCREASED [None]
